FAERS Safety Report 10681661 (Version 1)
Quarter: 2014Q4

REPORT INFORMATION
  Report Type: Spontaneous
  Country: DE (occurrence: DE)
  Receive Date: 20141230
  Receipt Date: 20141230
  Transmission Date: 20150529
  Serious: Yes (Other)
  Sender: FDA-Public Use
  Company Number: DE-RANBAXY-2014R1-90645

PATIENT
  Age: 28 Year
  Sex: Female

DRUGS (2)
  1. TOPIRAMATE. [Suspect]
     Active Substance: TOPIRAMATE
     Indication: STATUS MIGRAINOSUS
     Dosage: 25 MG, UNK
     Route: 048
     Dates: start: 20140924, end: 20140927
  2. TOPIRAMATE. [Suspect]
     Active Substance: TOPIRAMATE
     Indication: PAIN
     Dosage: 25 MG, BID
     Route: 048
     Dates: start: 20140928, end: 20141008

REACTIONS (5)
  - Fatigue [Recovering/Resolving]
  - Irritability [Recovering/Resolving]
  - Disturbance in attention [Recovering/Resolving]
  - Personality change [Recovering/Resolving]
  - Suicidal ideation [Recovering/Resolving]

NARRATIVE: CASE EVENT DATE: 201410
